FAERS Safety Report 4898686-0 (Version None)
Quarter: 2006Q1

REPORT INFORMATION
  Report Type: 
  Country: None (occurrence: None)
  Receive Date: 20060127
  Receipt Date: 20060105
  Transmission Date: 20060701
  Serious: Yes (Other)
  Sender: FDA-Public Use
  Company Number: USA0508105978

PATIENT
  Age: 9 Year
  Sex: Male
  Weight: 36.3 kg

DRUGS (1)
  1. STRATTERA [Suspect]
     Indication: ATTENTION DEFICIT/HYPERACTIVITY DISORDER
     Dosage: 50 MG, DAILY (1/D),
     Dates: start: 20041129

REACTIONS (3)
  - ERYTHEMA MULTIFORME [None]
  - UROBILIN URINE PRESENT [None]
  - VIRAL UPPER RESPIRATORY TRACT INFECTION [None]
